FAERS Safety Report 18428459 (Version 1)
Quarter: 2020Q4

REPORT INFORMATION
  Report Type: Spontaneous
  Country: US (occurrence: US)
  Receive Date: 20201026
  Receipt Date: 20201026
  Transmission Date: 20210114
  Serious: No
  Sender: FDA-Public Use
  Company Number: US-EISAI MEDICAL RESEARCH-EC-2020-082191

PATIENT
  Age: 73 Year
  Sex: Female

DRUGS (2)
  1. DAYVIGO [Suspect]
     Active Substance: LEMBOREXANT
     Indication: INSOMNIA
     Route: 048
     Dates: start: 20201012, end: 20201013
  2. DAYVIGO [Suspect]
     Active Substance: LEMBOREXANT
     Route: 048
     Dates: start: 20201014, end: 202010

REACTIONS (3)
  - Nocturia [Recovered/Resolved]
  - Drug ineffective [Unknown]
  - Micturition urgency [Unknown]

NARRATIVE: CASE EVENT DATE: 202010
